FAERS Safety Report 18402460 (Version 1)
Quarter: 2020Q4

REPORT INFORMATION
  Report Type: Spontaneous
  Country: GR (occurrence: GR)
  Receive Date: 20201019
  Receipt Date: 20201019
  Transmission Date: 20210114
  Serious: Yes (Hospitalization, Other)
  Sender: FDA-Public Use
  Company Number: GR-PFIZER INC-2020400385

PATIENT
  Age: 84 Year
  Sex: Male

DRUGS (1)
  1. EFEXOR XR [Suspect]
     Active Substance: VENLAFAXINE HYDROCHLORIDE
     Indication: DEPRESSION
     Dosage: UNK
     Dates: start: 2019

REACTIONS (5)
  - Fall [Unknown]
  - Scratch [Unknown]
  - Loss of consciousness [Unknown]
  - Balance disorder [Unknown]
  - Dizziness [Unknown]
